FAERS Safety Report 8486557-2 (Version None)
Quarter: 2012Q3

REPORT INFORMATION
  Report Type: 
  Country: None (occurrence: None)
  Receive Date: 20120703
  Receipt Date: 20120531
  Transmission Date: 20120928
  Serious: Yes (Disabling)
  Sender: FDA-Public Use
  Company Number: US-BAYER-200911547BCC

PATIENT
  Age: 76 Year
  Sex: Female
  Weight: 72.727 kg

DRUGS (6)
  1. MULTI-VITAMIN [Concomitant]
  2. PREMARIN [Concomitant]
     Dosage: CONSUMER TAKES ONE TAB ONCE OR TWICE A WEEK
     Route: 048
     Dates: start: 19630101
  3. NAPROXEN (ALEVE) [Suspect]
     Indication: HEADACHE
     Dosage: DAILY DOSE 220 MG
     Route: 048
     Dates: start: 20090518, end: 20090518
  4. NAPROXEN (ALEVE) [Suspect]
     Indication: MUSCLE SPASMS
  5. ASPIRIN [Concomitant]
     Dosage: UNK
     Route: 048
  6. FLEXERIL [Concomitant]
     Indication: BACK PAIN
     Dosage: UNK

REACTIONS (19)
  - OEDEMA PERIPHERAL [None]
  - LIMB DISCOMFORT [None]
  - PAIN IN EXTREMITY [None]
  - RASH MACULAR [None]
  - MUSCULAR WEAKNESS [None]
  - SKIN FISSURES [None]
  - BURNING SENSATION [None]
  - PERIPHERAL NERVE INJURY [None]
  - WOUND [None]
  - PRURITUS [None]
  - SKIN WRINKLING [None]
  - DEPRESSION [None]
  - HYPOAESTHESIA [None]
  - HYPERSENSITIVITY [None]
  - ASTHENIA [None]
  - GAIT DISTURBANCE [None]
  - PALMAR ERYTHEMA [None]
  - DIZZINESS [None]
  - RASH [None]
